FAERS Safety Report 9443315 (Version 2)
Quarter: 2013Q3

REPORT INFORMATION
  Report Type: Spontaneous
  Country: US (occurrence: US)
  Receive Date: 20130806
  Receipt Date: 20130905
  Transmission Date: 20140515
  Serious: Yes (Hospitalization)
  Sender: FDA-Public Use
  Company Number: US-GLAXOSMITHKLINE-A1036175A

PATIENT
  Age: 66 Year
  Sex: Male
  Weight: 77.3 kg

DRUGS (15)
  1. VOTRIENT [Suspect]
     Indication: METASTATIC CARCINOMA OF THE BLADDER
     Dosage: 800MG PER DAY
     Route: 048
     Dates: start: 20130617, end: 20130722
  2. PACLITAXEL [Suspect]
     Indication: METASTATIC CARCINOMA OF THE BLADDER
     Route: 042
     Dates: start: 20130617, end: 20130722
  3. GLIMEPIRIDE [Concomitant]
  4. NOVOLOG [Concomitant]
  5. LEVEMIR [Concomitant]
  6. CELEXA [Concomitant]
  7. ALLOPURINOL [Concomitant]
  8. OMEPRAZOL [Concomitant]
  9. CRANBERRY [Concomitant]
  10. MULTIVITAMIN [Concomitant]
  11. ALPHALIPOIC ACID [Concomitant]
  12. CEFEPIME HYDROCHLORIDE [Concomitant]
  13. VANCOMYCIN HCL [Concomitant]
  14. CIPRO [Concomitant]
  15. LEVAQUIN [Concomitant]

REACTIONS (5)
  - Febrile neutropenia [Recovered/Resolved]
  - Fatigue [Recovered/Resolved]
  - Pyrexia [Recovered/Resolved]
  - Infection [Recovered/Resolved]
  - Bladder catheterisation [Recovered/Resolved]
